FAERS Safety Report 20056693 (Version 1)
Quarter: 2021Q4

REPORT INFORMATION
  Report Type: Spontaneous
  Country: AU (occurrence: AU)
  Receive Date: 20211111
  Receipt Date: 20211111
  Transmission Date: 20220303
  Serious: Yes (Other)
  Sender: FDA-Public Use
  Company Number: AU-AMGEN-AUSSP2021175383

PATIENT

DRUGS (1)
  1. NPLATE [Suspect]
     Active Substance: ROMIPLOSTIM
     Indication: Exposure during pregnancy
     Dosage: 5 MICROGRAM/KILOGRAM
     Route: 064

REACTIONS (2)
  - Thrombocytopenia neonatal [Recovering/Resolving]
  - Foetal exposure during pregnancy [Unknown]
